FAERS Safety Report 12957577 (Version 3)
Quarter: 2016Q4

REPORT INFORMATION
  Report Type: Spontaneous
  Country: IT (occurrence: IT)
  Receive Date: 20161118
  Receipt Date: 20161130
  Transmission Date: 20170207
  Serious: Yes (Hospitalization, Other)
  Sender: FDA-Public Use
  Company Number: IT-PFIZER INC-2016536911

PATIENT
  Age: 59 Year
  Sex: Female

DRUGS (1)
  1. EXEMESTANE. [Suspect]
     Active Substance: EXEMESTANE
     Indication: BREAST CANCER
     Dosage: UNK

REACTIONS (6)
  - Drug-induced liver injury [Unknown]
  - Abdominal discomfort [Recovering/Resolving]
  - Pruritus generalised [Recovering/Resolving]
  - Asthenia [Recovering/Resolving]
  - Chromaturia [Recovering/Resolving]
  - Faeces pale [Unknown]

NARRATIVE: CASE EVENT DATE: 20161022
